FAERS Safety Report 13188231 (Version 1)
Quarter: 2017Q1

REPORT INFORMATION
  Report Type: Spontaneous
  Country: US (occurrence: US)
  Receive Date: 20170206
  Receipt Date: 20170206
  Transmission Date: 20170428
  Serious: No
  Sender: FDA-Public Use
  Company Number: None

PATIENT
  Age: 65 Year
  Sex: Female
  Weight: 99.88 kg

DRUGS (5)
  1. METOPROLOL SUCCINATE 50 MG [Suspect]
     Active Substance: METOPROLOL SUCCINATE
     Indication: BLOOD PRESSURE MANAGEMENT
     Dosage: ?          QUANTITY:\ QU\\E;?
     Route: 048
     Dates: start: 20170116, end: 20170116
  2. CENTRUM VITAMINS LIQUID [Concomitant]
     Active Substance: VITAMINS
  3. VITAMINS [Concomitant]
     Active Substance: VITAMINS
  4. FISH OIL [Concomitant]
     Active Substance: FISH OIL
  5. DOCUSATE [Concomitant]
     Active Substance: DOCUSATE

REACTIONS (5)
  - Epistaxis [None]
  - Vaginal haemorrhage [None]
  - Balance disorder [None]
  - Tendon rupture [None]
  - Fall [None]

NARRATIVE: CASE EVENT DATE: 20140601
